FAERS Safety Report 15879344 (Version 3)
Quarter: 2019Q2

REPORT INFORMATION
  Report Type: Report from Study
  Country: US (occurrence: US)
  Receive Date: 20190128
  Receipt Date: 20190415
  Transmission Date: 20190711
  Serious: Yes (Hospitalization, Other)
  Sender: FDA-Public Use
  Company Number: US-REGENERON PHARMACEUTICALS, INC.-2019-13126

PATIENT

DRUGS (2)
  1. EYLEA [Suspect]
     Active Substance: AFLIBERCEPT
     Dosage: 0.05 ML, Q5W
     Route: 031
     Dates: start: 20180321, end: 20180321
  2. EYLEA [Suspect]
     Active Substance: AFLIBERCEPT
     Indication: DIABETIC RETINAL OEDEMA
     Dosage: 0.05ML, Q5W
     Route: 031
     Dates: start: 20180214

REACTIONS (3)
  - Mutism [Unknown]
  - Malaise [Unknown]
  - Hospitalisation [Recovered/Resolved]
